FAERS Safety Report 4556217-9 (Version None)
Quarter: 2005Q1

REPORT INFORMATION
  Report Type: 
  Country: None (occurrence: None)
  Receive Date: 20050103
  Receipt Date: 20040823
  Transmission Date: 20050727
  Serious: Yes (Other)
  Sender: FDA-Public Use
  Company Number: 2004UW17929

PATIENT
  Age: 58 Year
  Sex: Female
  Weight: 87.5442 kg

DRUGS (12)
  1. CRESTOR [Suspect]
     Indication: BLOOD CHOLESTEROL INCREASED
     Dosage: 5 MG PO
     Route: 048
  2. CRESTOR [Suspect]
     Indication: BLOOD CHOLESTEROL INCREASED
     Dosage: 10 MG PO
     Route: 048
  3. ATACAND [Concomitant]
  4. ESTRADIOL [Concomitant]
  5. ASPIRIN [Concomitant]
  6. TYLENOL [Concomitant]
  7. WELLBUTRIN [Concomitant]
  8. PREVACID [Concomitant]
  9. MICARDIS [Concomitant]
  10. VITAMIN E [Concomitant]
  11. EVENING PRIMROSE [Concomitant]
  12. ZYRTEC [Concomitant]

REACTIONS (4)
  - ARTHRALGIA [None]
  - CHILLS [None]
  - MYALGIA [None]
  - TACHYCARDIA [None]
